FAERS Safety Report 24323436 (Version 1)
Quarter: 2024Q3

REPORT INFORMATION
  Report Type: Spontaneous
  Country: US (occurrence: None)
  Receive Date: 20240916
  Receipt Date: 20240916
  Transmission Date: 20241016
  Serious: Yes (Hospitalization)
  Sender: Public
  Company Number: None

PATIENT
  Sex: Female

DRUGS (2)
  1. TADALAFIL [Suspect]
     Active Substance: TADALAFIL
     Indication: Pulmonary arterial hypertension
     Dosage: FREQUENCY : DAILY;?
     Route: 048
     Dates: start: 202408
  2. UPTRAVI (MNTH 1 TITR), OPSUMIT [Concomitant]

REACTIONS (9)
  - Muscle discomfort [None]
  - Arthralgia [None]
  - Nausea [None]
  - Diarrhoea [None]
  - Fluid retention [None]
  - Therapy interrupted [None]
  - Dyspnoea [None]
  - Oedema peripheral [None]
  - Wheezing [None]
